FAERS Safety Report 15284053 (Version 1)
Quarter: 2018Q3

REPORT INFORMATION
  Report Type: Spontaneous
  Country: US (occurrence: US)
  Receive Date: 20180801
  Receipt Date: 20180801
  Transmission Date: 20181010
  Serious: No
  Sender: FDA-Public Use
  Company Number: None

PATIENT
  Age: 70 Year
  Sex: Male
  Weight: 90 kg

DRUGS (5)
  1. ATENOLOL 100MG [Concomitant]
     Active Substance: ATENOLOL
  2. CASODEX 50MG [Concomitant]
  3. FLOMAX 0.4MG [Concomitant]
  4. PERCOCET 5/325MG [Concomitant]
  5. ZYTIGA [Suspect]
     Active Substance: ABIRATERONE ACETATE
     Indication: PROSTATE CANCER
     Route: 048
     Dates: start: 20180124

REACTIONS (2)
  - Headache [None]
  - Musculoskeletal pain [None]

NARRATIVE: CASE EVENT DATE: 20180801
